FAERS Safety Report 23647415 (Version 1)
Quarter: 2024Q1

REPORT INFORMATION
  Report Type: Spontaneous
  Country: FI (occurrence: FI)
  Receive Date: 20240319
  Receipt Date: 20240319
  Transmission Date: 20240410
  Serious: Yes (Life-Threatening, Hospitalization, Other)
  Sender: FDA-Public Use
  Company Number: FI-CELLTRION INC.-2024FI004953

PATIENT

DRUGS (46)
  1. RITUXIMAB [Suspect]
     Active Substance: RITUXIMAB
     Indication: Diffuse large B-cell lymphoma stage II
     Dosage: UNK
     Dates: start: 20230928, end: 20231109
  2. RITUXIMAB [Suspect]
     Active Substance: RITUXIMAB
     Dosage: CYCLE 1 - ONWARDS
     Dates: start: 20231212
  3. IFOSFAMIDE [Suspect]
     Active Substance: IFOSFAMIDE
     Indication: Diffuse large B-cell lymphoma stage II
     Dosage: CYCLE 1
     Dates: start: 20231213, end: 20231214
  4. IFOSFAMIDE [Suspect]
     Active Substance: IFOSFAMIDE
     Dosage: CYCLE 2
     Dates: start: 20240103, end: 20240104
  5. IFOSFAMIDE [Suspect]
     Active Substance: IFOSFAMIDE
     Dosage: CYCLE 3
     Dates: start: 20240124, end: 20240125
  6. CARBOPLATIN [Suspect]
     Active Substance: CARBOPLATIN
     Indication: Diffuse large B-cell lymphoma stage II
     Dosage: 5 AUC, CYCLE 1 - ONWARDS
     Dates: start: 20231213
  7. ETOPOSIDE [Suspect]
     Active Substance: ETOPOSIDE
     Indication: Diffuse large B-cell lymphoma stage II
     Dosage: CYCLE 1
     Dates: start: 20231212, end: 20231214
  8. ETOPOSIDE [Suspect]
     Active Substance: ETOPOSIDE
     Dosage: CYCLE 2
     Dates: start: 20240102, end: 20240104
  9. ETOPOSIDE [Suspect]
     Active Substance: ETOPOSIDE
     Dosage: CYCLE 3
     Dates: start: 20240123, end: 20240125
  10. FUROSEMIDE [Concomitant]
     Active Substance: FUROSEMIDE
     Dosage: UNK
     Dates: start: 20230925
  11. ELECTROLYTES NOS [Concomitant]
     Active Substance: ELECTROLYTES NOS
     Dosage: UNK
     Dates: start: 20231228, end: 20231229
  12. PREDNISOLONE [Concomitant]
     Active Substance: PREDNISOLONE
     Indication: Prophylaxis
     Dosage: 100 MG
     Route: 048
     Dates: start: 20231221, end: 20231224
  13. PREDNISOLONE [Concomitant]
     Active Substance: PREDNISOLONE
     Dosage: 100 MG
     Route: 048
     Dates: start: 20231228, end: 20231231
  14. PREDNISOLONE [Concomitant]
     Active Substance: PREDNISOLONE
     Dosage: 100 MG
     Route: 048
     Dates: start: 20240104
  15. POTASSIUM CHLORIDE [Concomitant]
     Active Substance: POTASSIUM CHLORIDE
     Dosage: UNK
     Dates: start: 20230928
  16. PEGFILGRASTIM [Concomitant]
     Active Substance: PEGFILGRASTIM
     Dosage: UNK
     Dates: start: 20230929
  17. ARANESP [Concomitant]
     Active Substance: DARBEPOETIN ALFA
     Dosage: UNK
     Dates: start: 20231222
  18. SODIUM CHLORIDE [Concomitant]
     Active Substance: SODIUM CHLORIDE
     Dosage: UNK
     Dates: start: 20240102, end: 20240104
  19. ACETAMINOPHEN [Concomitant]
     Active Substance: ACETAMINOPHEN
     Indication: Premedication
     Dosage: 1 G
     Route: 048
     Dates: start: 20240104, end: 20240104
  20. ACETAMINOPHEN [Concomitant]
     Active Substance: ACETAMINOPHEN
     Dosage: 1 G
     Route: 048
     Dates: start: 20240111, end: 20240111
  21. EPCORITAMAB [Concomitant]
     Active Substance: EPCORITAMAB
     Indication: Diffuse large B-cell lymphoma stage II
     Dosage: C1D1
     Route: 058
     Dates: start: 20231214, end: 20231214
  22. EPCORITAMAB [Concomitant]
     Active Substance: EPCORITAMAB
     Dosage: C1D8
     Route: 058
     Dates: start: 20231221, end: 20231221
  23. EPCORITAMAB [Concomitant]
     Active Substance: EPCORITAMAB
     Dosage: C1D15
     Route: 058
     Dates: start: 20231228
  24. DEXAMETHASONE [Concomitant]
     Active Substance: DEXAMETHASONE
     Indication: Prophylaxis
     Dosage: 7.5 MG
     Route: 048
     Dates: start: 20240102, end: 20240102
  25. DEXAMETHASONE [Concomitant]
     Active Substance: DEXAMETHASONE
     Dosage: 20 MG
     Route: 048
     Dates: start: 20240103, end: 20240103
  26. ENOXAPARIN SODIUM [Concomitant]
     Active Substance: ENOXAPARIN SODIUM
     Dosage: UNK
     Dates: start: 20230925
  27. HICET [Concomitant]
     Indication: Premedication
     Dosage: 10 MG
     Route: 048
     Dates: start: 20240104, end: 20240104
  28. HICET [Concomitant]
     Dosage: 10 MG
     Route: 048
     Dates: start: 20240111, end: 20240111
  29. HICET [Concomitant]
     Dosage: 10 MG
     Route: 048
     Dates: start: 20240118, end: 20240118
  30. BECLOMET [BECLOMETASONE DIPROPIONATE] [Concomitant]
     Dosage: UNK
     Dates: start: 20201209
  31. CEPHALEXIN [Concomitant]
     Active Substance: CEPHALEXIN
     Dosage: UNK
     Dates: start: 20231231, end: 20240104
  32. CEFUROXIME [Concomitant]
     Active Substance: CEFUROXIME
     Dosage: UNK
     Dates: start: 20231228, end: 20231231
  33. PANADOL [Concomitant]
     Active Substance: ACETAMINOPHEN
     Dosage: UNK
     Dates: start: 20230929
  34. OXAZEPAM [Concomitant]
     Active Substance: OXAZEPAM
     Dosage: UNK
     Dates: start: 20231204
  35. PRIMPERAN [Concomitant]
     Active Substance: METOCLOPRAMIDE HYDROCHLORIDE
     Dosage: UNK
     Dates: start: 20230925
  36. LEVOTHYROXINE [Concomitant]
     Active Substance: LEVOTHYROXINE\LEVOTHYROXINE SODIUM
     Dosage: UNK
     Dates: start: 20201109
  37. HYDROCORTISONE [Concomitant]
     Active Substance: HYDROCORTISONE
     Dosage: UNK
     Dates: start: 20231218, end: 20240104
  38. DIFLUCAN [Concomitant]
     Active Substance: FLUCONAZOLE
     Dosage: UNK
     Dates: start: 20231222
  39. ONDANSETRON [Concomitant]
     Active Substance: ONDANSETRON
     Dosage: UNK
     Dates: start: 20230925
  40. IBUPROFEN [Concomitant]
     Active Substance: IBUPROFEN
     Dosage: UNK
     Dates: start: 20231229, end: 20231230
  41. POLYETHYLENE GLYCOL 4000 [Concomitant]
     Active Substance: POLYETHYLENE GLYCOL 4000
     Dosage: UNK
     Dates: start: 20230929
  42. PANTOPRAZOLE SODIUM [Concomitant]
     Active Substance: PANTOPRAZOLE SODIUM
     Dosage: UNK
     Dates: start: 20230925
  43. NYSTATIN [Concomitant]
     Active Substance: NYSTATIN
     Dosage: UNK
     Dates: start: 20231222
  44. FUROSEMIDE [Concomitant]
     Active Substance: FUROSEMIDE
     Dosage: UNK
     Dates: start: 20231212
  45. ACLOVIR [Concomitant]
     Dosage: UNK
     Dates: start: 20240111, end: 20240117
  46. ALOXI [Concomitant]
     Active Substance: PALONOSETRON HYDROCHLORIDE
     Dosage: UNK
     Dates: start: 20240125, end: 20240125

REACTIONS (3)
  - Neutropenic infection [Not Recovered/Not Resolved]
  - Cytokine release syndrome [Not Recovered/Not Resolved]
  - Product use issue [Unknown]

NARRATIVE: CASE EVENT DATE: 20240111
